FAERS Safety Report 23455195 (Version 1)
Quarter: 2024Q1

REPORT INFORMATION
  Report Type: Report from Study
  Country: US (occurrence: US)
  Receive Date: 20240130
  Receipt Date: 20240130
  Transmission Date: 20240410
  Serious: No
  Sender: FDA-Public Use
  Company Number: US-ACADIA PHARMACEUTICALS INC.-ACA-2024-PIM-000062

PATIENT
  Sex: Female

DRUGS (16)
  1. NUPLAZID [Suspect]
     Active Substance: PIMAVANSERIN TARTRATE
     Indication: Parkinson^s disease psychosis
     Dosage: 34 MILLIGRAM, QD
     Route: 048
     Dates: start: 202311
  2. PLAVIX [Concomitant]
     Active Substance: CLOPIDOGREL BISULFATE
  3. AYR [UREA] [Concomitant]
  4. SEROQUEL [Concomitant]
     Active Substance: QUETIAPINE FUMARATE
  5. ASPIRIN [Concomitant]
     Active Substance: ASPIRIN
  6. PRAMIPEXOLE [Concomitant]
     Active Substance: PRAMIPEXOLE\PRAMIPEXOLE DIHYDROCHLORIDE
  7. LEVOTHYROXINE [Concomitant]
     Active Substance: LEVOTHYROXINE\LEVOTHYROXINE SODIUM
  8. METOPROLOL [Concomitant]
     Active Substance: METOPROLOL
  9. ROSUVASTATIN [Concomitant]
     Active Substance: ROSUVASTATIN
  10. RIVASTIGMINE [Concomitant]
     Active Substance: RIVASTIGMINE
  11. MIRALAX [Concomitant]
     Active Substance: POLYETHYLENE GLYCOL 3350
  12. CLOTRIMAZOLE [Concomitant]
     Active Substance: CLOTRIMAZOLE
  13. LOSARTANL AMLODIPINE [Concomitant]
  14. MELATONIN [Concomitant]
     Active Substance: MELATONIN
  15. RYTARY [Concomitant]
     Active Substance: CARBIDOPA\LEVODOPA
  16. SINGULAIR [Concomitant]
     Active Substance: MONTELUKAST SODIUM

REACTIONS (4)
  - Psychomotor hyperactivity [Not Recovered/Not Resolved]
  - Condition aggravated [Not Recovered/Not Resolved]
  - Insomnia [Not Recovered/Not Resolved]
  - Hypersexuality [Not Recovered/Not Resolved]
